FAERS Safety Report 21601655 (Version 2)
Quarter: 2023Q1

REPORT INFORMATION
  Report Type: Spontaneous
  Country: US (occurrence: US)
  Receive Date: 20221116
  Receipt Date: 20230308
  Transmission Date: 20230418
  Serious: Yes (Hospitalization, Other)
  Sender: FDA-Public Use
  Company Number: US-LUPIN PHARMACEUTICALS INC.-2022-13506

PATIENT

DRUGS (1)
  1. ALBUTEROL SULFATE [Suspect]
     Active Substance: ALBUTEROL SULFATE
     Indication: Asthma
     Dosage: UNK

REACTIONS (6)
  - Respiratory distress [Unknown]
  - Drug dose omission by device [Unknown]
  - Expired device used [Unknown]
  - Product label issue [Unknown]
  - Device delivery system issue [Unknown]
  - Condition aggravated [Unknown]
